FAERS Safety Report 7119489-2 (Version None)
Quarter: 2010Q4

REPORT INFORMATION
  Report Type: 
  Country: None (occurrence: None)
  Receive Date: 20101028
  Receipt Date: 20100524
  Transmission Date: 20110411
  Serious: Yes (Other)
  Sender: FDA-Public Use
  Company Number: DSA_43207_2010

PATIENT
  Sex: Female

DRUGS (6)
  1. WELLBUTRIN XL [Suspect]
     Indication: DEPRESSION
     Dosage: (1 DF ORAL) ; (1 DF ORAL)
     Route: 048
     Dates: start: 20090101
  2. BUPROPION HYDROCHLORIDE [Suspect]
     Indication: DEPRESSION
     Dosage: (150 MG QD ORAL)
     Route: 048
     Dates: start: 20090101
  3. EFFEXOR [Concomitant]
  4. HYDROCHLOROTHIAZIDE [Concomitant]
  5. SIMVASTATIN [Concomitant]
  6. LEVOTHYROXINE [Concomitant]

REACTIONS (3)
  - DEPRESSED MOOD [None]
  - RASH [None]
  - SUICIDAL IDEATION [None]
